FAERS Safety Report 10682696 (Version 1)
Quarter: 2014Q4

REPORT INFORMATION
  Report Type: Spontaneous
  Country: US (occurrence: None)
  Receive Date: 20141209
  Receipt Date: 20141209
  Transmission Date: 20150529
  Serious: Yes (Other)
  Sender: FDA-Public Use
  Company Number: 401760

PATIENT
  Age: 56 Year
  Sex: Female
  Weight: 67.1 kg

DRUGS (4)
  1. WELLBUTRIN (IBUPROPION HYDROCHLORIDE) [Concomitant]
  2. LEVEMIR [Suspect]
     Active Substance: INSULIN DETEMIR
     Indication: DIABETES MELLITUS INADEQUATE CONTROL
     Route: 058
  3. LEVOTHYROXINE (LEVOTHYROXINE) [Concomitant]
     Active Substance: LEVOTHYROXINE
  4. NOVOLOG [Suspect]
     Active Substance: INSULIN ASPART
     Indication: DIABETES MELLITUS INADEQUATE CONTROL
     Dosage: SLIDING SCALE
     Route: 058

REACTIONS (1)
  - Hypoglycaemic unconsciousness [None]

NARRATIVE: CASE EVENT DATE: 2011
